FAERS Safety Report 6810955-3 (Version None)
Quarter: 2010Q2

REPORT INFORMATION
  Report Type: 
  Country: None (occurrence: None)
  Receive Date: 20100630
  Receipt Date: 20081110
  Transmission Date: 20101027
  Serious: No
  Sender: FDA-Public Use
  Company Number: US-PFIZER INC-2008076475

PATIENT
  Sex: Female

DRUGS (3)
  1. ESTRING [Suspect]
     Indication: VULVOVAGINAL PRURITUS
     Dates: start: 20080401
  2. ESTRING [Suspect]
     Indication: VULVOVAGINAL BURNING SENSATION
  3. ALL OTHER THERAPEUTIC PRODUCTS [Concomitant]

REACTIONS (4)
  - CONDITION AGGRAVATED [None]
  - DRUG INEFFECTIVE [None]
  - VULVOVAGINAL BURNING SENSATION [None]
  - VULVOVAGINAL PRURITUS [None]
